FAERS Safety Report 7635265-6 (Version None)
Quarter: 2011Q3

REPORT INFORMATION
  Report Type: 
  Country: None (occurrence: None)
  Receive Date: 20110718
  Receipt Date: 20110704
  Transmission Date: 20111222
  Serious: Yes (Other)
  Sender: FDA-Public Use
  Company Number: 973849

PATIENT

DRUGS (5)
  1. LAMIVUDINE [Concomitant]
  2. VINORELBINE TARTRATE [Suspect]
     Indication: NON-SMALL CELL LUNG CANCER STAGE IIIB
  3. EFAVIRENZ [Concomitant]
  4. CISPLATIN [Suspect]
     Indication: NON-SMALL CELL LUNG CANCER STAGE IIIB
  5. ZIDOVUDINE [Suspect]
     Indication: HIV INFECTION

REACTIONS (3)
  - TOXICITY TO VARIOUS AGENTS [None]
  - DRUG INTERACTION [None]
  - ANAEMIA [None]
